FAERS Safety Report 7546213-1 (Version None)
Quarter: 2011Q2

REPORT INFORMATION
  Report Type: 
  Country: None (occurrence: None)
  Receive Date: 20110614
  Receipt Date: 20110607
  Transmission Date: 20111010
  Serious: Yes (Other)
  Sender: FDA-Public Use
  Company Number: US-TEVA-284950USA

PATIENT
  Sex: Female

DRUGS (1)
  1. CLARAVIS [Suspect]
     Dosage: 80 MILLIGRAM;
     Dates: start: 20100622

REACTIONS (2)
  - UNINTENDED PREGNANCY [None]
  - PREGNANCY WITH CONTRACEPTIVE DEVICE [None]
